FAERS Safety Report 6429728-9 (Version None)
Quarter: 2009Q4

REPORT INFORMATION
  Report Type: 
  Country: None (occurrence: None)
  Receive Date: 20091106
  Receipt Date: 20091103
  Transmission Date: 20100525
  Serious: Yes (Hospitalization, Other)
  Sender: FDA-Public Use
  Company Number: US-ASTRAZENECA-2009SE17832

PATIENT
  Age: 48 Year
  Sex: Female
  Weight: 89.4 kg

DRUGS (6)
  1. SEROQUEL [Suspect]
     Indication: MENTAL DISORDER
     Dosage: 25 MG  TO 100 MG DAILY
     Route: 048
     Dates: start: 20001101, end: 20060101
  2. SEROQUEL [Suspect]
     Indication: SLEEP DISORDER
     Dosage: 25 MG  TO 100 MG DAILY
     Route: 048
     Dates: start: 20001101, end: 20060101
  3. ABILIFY [Concomitant]
  4. GEODON [Concomitant]
  5. RISPERDAL [Concomitant]
     Dosage: 15 ONE AT NIGHT
  6. ZYPREXA [Concomitant]
     Dates: start: 19990101, end: 20040101

REACTIONS (2)
  - DIABETIC NEUROPATHY [None]
  - TYPE 2 DIABETES MELLITUS [None]
